FAERS Safety Report 17091221 (Version 1)
Quarter: 2019Q4

REPORT INFORMATION
  Report Type: Spontaneous
  Country: US (occurrence: US)
  Receive Date: 20191127
  Receipt Date: 20191127
  Transmission Date: 20200122
  Serious: Yes (Other)
  Sender: FDA-Public Use
  Company Number: None

PATIENT
  Age: 32 Year
  Sex: Male
  Weight: 84 kg

DRUGS (1)
  1. ROYAL HONEY ETUMAX [Suspect]
     Active Substance: HERBALS

REACTIONS (5)
  - Vomiting [None]
  - Hyperaesthesia [None]
  - Back pain [None]
  - Headache [None]
  - Nausea [None]
